FAERS Safety Report 7200820-4 (Version None)
Quarter: 2010Q4

REPORT INFORMATION
  Report Type: 
  Country: None (occurrence: None)
  Receive Date: 20101228
  Receipt Date: 20101224
  Transmission Date: 20110411
  Serious: Yes (Hospitalization)
  Sender: FDA-Public Use
  Company Number: JP-PFIZER INC-2010179118

PATIENT
  Age: 69 Year
  Sex: Male

DRUGS (1)
  1. UNASYN [Suspect]
     Indication: PNEUMONIA
     Dosage: 6G DAILY
     Route: 042
     Dates: start: 20101213, end: 20101216

REACTIONS (1)
  - BLOOD CREATINE PHOSPHOKINASE INCREASED [None]
